FAERS Safety Report 11226513 (Version 2)
Quarter: 2015Q3

REPORT INFORMATION
  Report Type: Spontaneous
  Country: US (occurrence: US)
  Receive Date: 20150629
  Receipt Date: 20150729
  Transmission Date: 20151125
  Serious: Yes (Other)
  Sender: FDA-Public Use
  Company Number: ALCN2015US003969

PATIENT
  Age: 61 Year
  Sex: Female

DRUGS (1)
  1. ILEVRO [Suspect]
     Active Substance: NEPAFENAC
     Indication: CATARACT OPERATION
     Dosage: 1 GTT, QD
     Route: 047
     Dates: start: 20150418

REACTIONS (4)
  - Iritis [Recovered/Resolved]
  - Cystoid macular oedema [Recovered/Resolved]
  - Visual acuity reduced [Recovered/Resolved]
  - Drug ineffective [Recovered/Resolved]

NARRATIVE: CASE EVENT DATE: 20150509
